FAERS Safety Report 9213134 (Version 2)
Quarter: 2013Q2

REPORT INFORMATION
  Report Type: Spontaneous
  Country: US (occurrence: US)
  Receive Date: 20130405
  Receipt Date: 20130523
  Transmission Date: 20140414
  Serious: No
  Sender: FDA-Public Use
  Company Number: US-PFIZER INC-2013108078

PATIENT
  Age: 94 Year
  Sex: Female
  Weight: 58 kg

DRUGS (3)
  1. LYRICA [Suspect]
     Indication: DIABETIC NEUROPATHY
     Dosage: 25 MG, 1X/DAY
     Route: 048
     Dates: start: 20130125
  2. LYRICA [Suspect]
     Indication: PAIN IN EXTREMITY
  3. DIOVAN [Concomitant]
     Dosage: UNK

REACTIONS (2)
  - Fall [Unknown]
  - Pain in extremity [Unknown]
